FAERS Safety Report 20548316 (Version 1)
Quarter: 2022Q1

REPORT INFORMATION
  Report Type: Report from Study
  Country: US (occurrence: US)
  Receive Date: 20220303
  Receipt Date: 20220303
  Transmission Date: 20220424
  Serious: Yes (Hospitalization, Other)
  Sender: FDA-Public Use
  Company Number: US-GILEAD-2022-0570603

PATIENT
  Age: 74 Year
  Sex: Male
  Weight: 73.3 kg

DRUGS (26)
  1. SOFOSBUVIR\VELPATASVIR [Suspect]
     Active Substance: SOFOSBUVIR\VELPATASVIR
     Indication: Chronic hepatitis C
     Dosage: 1 DOSAGE FORM
     Route: 065
     Dates: start: 20180802, end: 20181025
  2. ACETAMINOPHEN [Concomitant]
     Active Substance: ACETAMINOPHEN
  3. ASPIRIN [Concomitant]
     Active Substance: ASPIRIN
  4. ALENDRONATE [Concomitant]
     Active Substance: ALENDRONATE SODIUM
  5. AMLODIPINE [Concomitant]
     Active Substance: AMLODIPINE BESYLATE
  6. CALCIUM CARBONATE [Concomitant]
     Active Substance: CALCIUM CARBONATE
  7. CYCLOSPORINE [Concomitant]
     Active Substance: CYCLOSPORINE
  8. CODEINE [Concomitant]
     Active Substance: CODEINE
  9. DICLOFENAC [Concomitant]
     Active Substance: DICLOFENAC
  10. DOCUSATE [Concomitant]
     Active Substance: DOCUSATE
  11. FERROUS FUMARATE [Concomitant]
     Active Substance: FERROUS FUMARATE
  12. HEPARIN [Concomitant]
     Active Substance: HEPARIN SODIUM
  13. HYDROMORPHONE [Concomitant]
     Active Substance: HYDROMORPHONE
  14. MAGNESIUM OXIDE [Concomitant]
     Active Substance: MAGNESIUM OXIDE
  15. MYFORTIC [Concomitant]
     Active Substance: MYCOPHENOLATE SODIUM
  16. NYSTATIN [Concomitant]
     Active Substance: NYSTATIN
  17. ONDANSETRON [Concomitant]
     Active Substance: ONDANSETRON
  18. PREDNISONE [Concomitant]
     Active Substance: PREDNISONE
  19. SENNA [SENNA ALEXANDRINA LEAF] [Concomitant]
  20. SEPTRA [Concomitant]
     Active Substance: SULFAMETHOXAZOLE\TRIMETHOPRIM
  21. PIPERACILLIN SODIUM\TAZOBACTAM SODIUM [Concomitant]
     Active Substance: PIPERACILLIN SODIUM\TAZOBACTAM SODIUM
  22. VALGANCICLOVIR [Concomitant]
     Active Substance: VALGANCICLOVIR
  23. NINTEDANIB [Concomitant]
     Active Substance: NINTEDANIB
  24. CHOLECALCIFEROL [Concomitant]
     Active Substance: CHOLECALCIFEROL
  25. XYLOMETAZOLINE [Concomitant]
     Active Substance: XYLOMETAZOLINE
  26. ZINC OXIDE [Concomitant]
     Active Substance: ZINC OXIDE

REACTIONS (2)
  - Transplant rejection [Unknown]
  - Diffuse alveolar damage [Unknown]

NARRATIVE: CASE EVENT DATE: 20180808
